FAERS Safety Report 14108269 (Version 7)
Quarter: 2018Q1

REPORT INFORMATION
  Report Type: Spontaneous
  Country: US (occurrence: US)
  Receive Date: 20171019
  Receipt Date: 20180111
  Transmission Date: 20180508
  Serious: Yes (Other)
  Sender: FDA-Public Use
  Company Number: US-PFIZER INC-2017074266

PATIENT
  Age: 8 Year
  Sex: Male
  Weight: 28 kg

DRUGS (6)
  1. GENOTROPIN [Suspect]
     Active Substance: SOMATROPIN
     Dosage: 9 IU, UNK
     Dates: start: 201707, end: 20170920
  2. LEVOTHYROXINE. [Concomitant]
     Active Substance: LEVOTHYROXINE
     Indication: THYROID HORMONES DECREASED
     Dosage: 75 UG, 1X/DAY
     Route: 048
     Dates: start: 200811
  3. GENOTROPIN [Suspect]
     Active Substance: SOMATROPIN
     Indication: GROWTH HORMONE DEFICIENCY
     Dosage: 8 UNITS, 1X/DAY
     Dates: start: 20170225
  4. GENOTROPIN [Suspect]
     Active Substance: SOMATROPIN
     Dosage: UNK
  5. GENOTROPIN [Suspect]
     Active Substance: SOMATROPIN
     Dosage: 8 UNITS/0.96 MG, 1X/DAY (IN THE EVENING)
     Dates: start: 20170506
  6. HYDROCORTISONE. [Concomitant]
     Active Substance: HYDROCORTISONE
     Indication: CORTISOL DECREASED
     Dosage: 5 MG IN THE MORNING AND 0.25 MG IN THE EVENING
     Dates: start: 200810

REACTIONS (19)
  - Nausea [Recovered/Resolved]
  - Product solubility abnormal [Not Recovered/Not Resolved]
  - Hypotension [Recovered/Resolved]
  - Asthenia [Recovered/Resolved]
  - Muscle spasms [Not Recovered/Not Resolved]
  - Sleep disorder [Recovered/Resolved]
  - Malaise [Recovered/Resolved]
  - Incorrect dose administered [Recovered/Resolved]
  - Poor quality drug administered [Not Recovered/Not Resolved]
  - Medication residue present [None]
  - Pain in extremity [Recovered/Resolved]
  - Drug prescribing error [Recovered/Resolved]
  - Loss of consciousness [Recovered/Resolved]
  - Blood glucose decreased [Recovered/Resolved]
  - Mood altered [Recovered/Resolved]
  - Device issue [None]
  - Wrong technique in product usage process [None]
  - Blindness transient [Recovered/Resolved]
  - Abnormal behaviour [Recovered/Resolved]

NARRATIVE: CASE EVENT DATE: 20170507
